FAERS Safety Report 6549668-4 (Version None)
Quarter: 2010Q1

REPORT INFORMATION
  Report Type: 
  Country: None (occurrence: None)
  Receive Date: 20100125
  Receipt Date: 20100120
  Transmission Date: 20100710
  Serious: Yes (Death, Other)
  Sender: FDA-Public Use
  Company Number: NL-BAYER-200913878GPV

PATIENT
  Age: 51 Year
  Sex: Female

DRUGS (23)
  1. NEXAVAR [Suspect]
     Indication: THYROID CANCER METASTATIC
     Dosage: TOTAL DAILY DOSE: 400 MG
     Route: 048
     Dates: start: 20090224, end: 20090310
  2. NEXAVAR [Suspect]
     Dosage: TOTAL DAILY DOSE: 400 MG
     Route: 048
     Dates: start: 20090310, end: 20090402
  3. NEXAVAR [Suspect]
     Dosage: TOTAL DAILY DOSE: 400 MG
     Route: 048
     Dates: start: 20090402, end: 20090407
  4. NEXAVAR [Suspect]
     Dosage: AS USED: 200/400 MG  UNIT DOSE: 200 MG
     Route: 048
     Dates: start: 20090408, end: 20090101
  5. NEXAVAR [Suspect]
     Dosage: TOTAL DAILY DOSE: 200 MG
     Route: 048
     Dates: start: 20090204, end: 20090223
  6. NEXAVAR [Suspect]
     Dosage: TOTAL DAILY DOSE: 200 MG  UNIT DOSE: 200 MG
     Route: 048
     Dates: start: 20090101
  7. VITAMINE D (NOS) [Concomitant]
     Indication: DRUG USE FOR UNKNOWN INDICATION
     Route: 048
  8. FOSAMAX [Concomitant]
     Indication: OSTEOPOROSIS
     Dosage: 1X A WEEK SITTING UPRIGHT
     Route: 048
  9. THYRAX [Concomitant]
     Indication: THYROID DISORDER
     Dosage: 0,125MG VS 0,150MG QOD
     Route: 048
     Dates: end: 20090223
  10. THYRAX [Concomitant]
     Dosage: 0.125 MG ONCE A DAY
     Route: 048
     Dates: start: 20090306
  11. THYRAX [Concomitant]
     Dosage: 0,125MG FROM MON TO FRI AND 0,150MG ON SAT AND SUN
     Route: 048
     Dates: start: 20090224, end: 20090305
  12. NORDETTE-28 [Concomitant]
     Indication: UNEVALUABLE EVENT
     Dosage: TOTAL DAILY DOSE: 30 ?G
     Route: 048
  13. PROPRANOLOL [Concomitant]
     Indication: HYPERTENSION
     Dosage: TOTAL DAILY DOSE: 30 MG
     Route: 048
     Dates: end: 20090101
  14. MAGNESIUM (NOS) [Concomitant]
     Indication: UNEVALUABLE EVENT
     Dosage: TOTAL DAILY DOSE: 1 DF
     Route: 048
  15. PARACOD [Concomitant]
     Indication: PAIN
     Dosage: 6 TIMES
     Route: 048
     Dates: start: 20090224
  16. PARACOD [Concomitant]
     Dosage: 6 TIMES PRN
     Route: 048
     Dates: end: 20090223
  17. SPACE CAKE [Concomitant]
     Indication: PAIN
     Dosage: NOS
     Route: 048
  18. OXYNORM [Concomitant]
     Indication: PAIN
     Dosage: 3-4 TIMES DAILY (NOS)
     Route: 003
  19. OXYNORM [Concomitant]
     Dosage: PRN TID 10 MG
     Route: 048
     Dates: end: 20090223
  20. OXYNORM [Concomitant]
     Dosage: TOTAL DAILY DOSE: 30 MG
     Route: 048
     Dates: start: 20090224
  21. CANNABIS TEA [Concomitant]
     Indication: PAIN
     Dosage: (NOS)
  22. DURAGESIC-100 [Concomitant]
     Indication: ANALGESIC THERAPY
     Dosage: 1 PLASTER PER DAY
     Route: 003
  23. PARACETAMOL [Concomitant]
     Indication: ANALGESIC THERAPY
     Dosage: PRN 6 TIMES 2 TBL

REACTIONS (12)
  - ABDOMINAL PAIN [None]
  - ALOPECIA [None]
  - BONE PAIN [None]
  - ERYTHEMA [None]
  - HAEMOTHORAX [None]
  - HYPERTENSION [None]
  - MUSCLE SPASMS [None]
  - NAUSEA [None]
  - PAIN IN EXTREMITY [None]
  - SKIN CHAPPED [None]
  - THYROID CANCER METASTATIC [None]
  - VULVOVAGINAL DRYNESS [None]
